FAERS Safety Report 23267910 (Version 1)
Quarter: 2023Q4

REPORT INFORMATION
  Report Type: Report from Study
  Country: US (occurrence: US)
  Receive Date: 20231206
  Receipt Date: 20231206
  Transmission Date: 20240110
  Serious: Yes (Hospitalization, Other)
  Sender: FDA-Public Use
  Company Number: US-JAZZ-2020-US-014952

PATIENT
  Age: 58 Year
  Sex: Male

DRUGS (92)
  1. XYREM [Suspect]
     Active Substance: SODIUM OXYBATE
     Indication: Pain
     Dosage: 3 GRAM, BID
     Route: 048
     Dates: start: 201010, end: 201011
  2. XYREM [Suspect]
     Active Substance: SODIUM OXYBATE
     Dosage: DOSE ADJUSTMENT
     Route: 048
     Dates: start: 201012, end: 201407
  3. XYREM [Suspect]
     Active Substance: SODIUM OXYBATE
     Dosage: 5 GRAM, FIRST DOSE
     Route: 048
     Dates: start: 201407, end: 202011
  4. XYREM [Suspect]
     Active Substance: SODIUM OXYBATE
     Dosage: 4 GRAM, SECOND DOSE
     Route: 048
     Dates: start: 201407, end: 202011
  5. ZTLIDO [Concomitant]
     Active Substance: LIDOCAINE
     Dosage: UNK
  6. METHOCARBAMOL [Concomitant]
     Active Substance: METHOCARBAMOL
     Dosage: UNK
  7. CLINDAMYCIN HYDROCHLORIDE [Concomitant]
     Active Substance: CLINDAMYCIN HYDROCHLORIDE
     Dosage: UNK
  8. DILAUDID [Concomitant]
     Active Substance: HYDROMORPHONE HYDROCHLORIDE
     Dosage: UNK
  9. CHLORTHALIDONE [Concomitant]
     Active Substance: CHLORTHALIDONE
     Dosage: UNK
  10. NAC 500 [Concomitant]
     Dosage: UNK
  11. SENNA LAXATIVE [Concomitant]
     Active Substance: SENNOSIDES
     Dosage: UNK
  12. TRINTELLIX [Concomitant]
     Active Substance: VORTIOXETINE HYDROBROMIDE
     Dosage: UNK
  13. DOXYCYCLINE HYCLATE [Concomitant]
     Active Substance: DOXYCYCLINE HYCLATE
     Dosage: UNK
  14. VIAGRA [Concomitant]
     Active Substance: SILDENAFIL CITRATE
     Dosage: UNK
  15. BREO ELLIPTA [Concomitant]
     Active Substance: FLUTICASONE FUROATE\VILANTEROL TRIFENATATE
     Dosage: UNK
  16. FUROSEMIDE [Concomitant]
     Active Substance: FUROSEMIDE
     Dosage: UNK
  17. CARTIA XT [Concomitant]
     Active Substance: DILTIAZEM HYDROCHLORIDE
     Dosage: UNK
  18. LISINOPRIL [Concomitant]
     Active Substance: LISINOPRIL
     Dosage: UNK
  19. CYCLOBENZAPRINE [Concomitant]
     Active Substance: CYCLOBENZAPRINE
     Dosage: UNK
  20. PROPYLENE GLYCOL [Concomitant]
     Active Substance: PROPYLENE GLYCOL
     Dosage: UNK
  21. METHYLPREDNISOLONE [Concomitant]
     Active Substance: METHYLPREDNISOLONE
  22. TIZANIDINE HYDROCHLORIDE [Concomitant]
     Active Substance: TIZANIDINE HYDROCHLORIDE
  23. PROPRANOLOL [Concomitant]
     Active Substance: PROPRANOLOL HYDROCHLORIDE
  24. VITAMIN C [Concomitant]
     Active Substance: ASCORBIC ACID
  25. FLOVENT HFA [Concomitant]
     Active Substance: FLUTICASONE PROPIONATE
  26. NAMENDA [Concomitant]
     Active Substance: MEMANTINE HYDROCHLORIDE
  27. BUTALB/ACET/CAFFEINE [Concomitant]
  28. BACTRIM [Concomitant]
     Active Substance: SULFAMETHOXAZOLE\TRIMETHOPRIM
  29. HERBALS\TURMERIC [Concomitant]
     Active Substance: HERBALS\TURMERIC
  30. MISOPROSTOL [Concomitant]
     Active Substance: MISOPROSTOL
  31. ZITHROMAX [Concomitant]
     Active Substance: AZITHROMYCIN DIHYDRATE
  32. OXYCONTIN [Concomitant]
     Active Substance: OXYCODONE HYDROCHLORIDE
  33. TESTOSTERON [TESTOSTERONE] [Concomitant]
  34. ANTIFUNGAL [MICONAZOLE NITRATE] [Concomitant]
  35. PREVIDENT [Concomitant]
     Active Substance: SODIUM FLUORIDE
  36. PROAIR HFA [Concomitant]
     Active Substance: ALBUTEROL SULFATE
  37. VITAMIN B COMPLEX [Concomitant]
     Active Substance: CYANOCOBALAMIN\DEXPANTHENOL\NIACINAMIDE\PYRIDOXINE HYDROCHLORIDE\RIBOFLAVIN 5^-PHOSPHATE SODIUM\THIA
  38. TESTOSTERONE [Concomitant]
     Active Substance: TESTOSTERONE
  39. BETAINE HCL [Concomitant]
  40. AMBIEN [Concomitant]
     Active Substance: ZOLPIDEM TARTRATE
  41. CELEBREX [Concomitant]
     Active Substance: CELECOXIB
  42. OMEPRAZOLE [Concomitant]
     Active Substance: OMEPRAZOLE
  43. TRILEPTAL [Concomitant]
     Active Substance: OXCARBAZEPINE
  44. PRASTERONE [Concomitant]
     Active Substance: PRASTERONE
  45. ZINC [Concomitant]
     Active Substance: PYRITHIONE ZINC\ZINC\ZINC CHLORIDE
  46. FISH OIL [Concomitant]
     Active Substance: FISH OIL
  47. MELATONIN [Concomitant]
     Active Substance: MELATONIN
  48. ACETYLCYSTEINE [Concomitant]
     Active Substance: ACETYLCYSTEINE
  49. SENNOSIDES [Concomitant]
     Active Substance: SENNOSIDES
  50. VALIUM [Concomitant]
     Active Substance: DIAZEPAM
  51. VIIBRYD [Concomitant]
     Active Substance: VILAZODONE HYDROCHLORIDE
  52. VITAMIN D3 [Concomitant]
     Active Substance: CHOLECALCIFEROL
  53. GENTIAN VIOLET [Concomitant]
     Active Substance: GENTIAN VIOLET
  54. LAMISIL [Concomitant]
     Active Substance: TERBINAFINE HYDROCHLORIDE
  55. MS CONTIN [Concomitant]
     Active Substance: MORPHINE SULFATE
  56. OXYCODONE HYDROCHLORIDE [Concomitant]
     Active Substance: OXYCODONE HYDROCHLORIDE
  57. TOPIRAMATE [Concomitant]
     Active Substance: TOPIRAMATE
  58. HYDROMORPHONE [Concomitant]
     Active Substance: HYDROMORPHONE
  59. MORPHINE SULFATE [Concomitant]
     Active Substance: MORPHINE SULFATE
  60. DOCUSATE SODIUM [Concomitant]
     Active Substance: DOCUSATE SODIUM
  61. BACLOFEN [Concomitant]
     Active Substance: BACLOFEN
  62. DIAZEPAM [Concomitant]
     Active Substance: DIAZEPAM
  63. FENTANYL [Concomitant]
     Active Substance: FENTANYL\FENTANYL CITRATE
  64. MIRTAZAPINE [Concomitant]
     Active Substance: MIRTAZAPINE
  65. NORTRIPTYLINE HYDROCHLORIDE [Concomitant]
     Active Substance: NORTRIPTYLINE HYDROCHLORIDE
  66. ZANAFLEX [Concomitant]
     Active Substance: TIZANIDINE HYDROCHLORIDE
  67. ATENOLOL [Concomitant]
     Active Substance: ATENOLOL
  68. BOTOX [Concomitant]
     Active Substance: ONABOTULINUMTOXINA
  69. BUTALBITAL AND ACETAMINOPHEN [Concomitant]
     Active Substance: ACETAMINOPHEN\BUTALBITAL
  70. CAFFEINE [Concomitant]
     Active Substance: CAFFEINE
  71. CELECOXIB [Concomitant]
     Active Substance: CELECOXIB
  72. CLOBETASOL [Concomitant]
     Active Substance: CLOBETASOL
  73. CYMBALTA [Concomitant]
     Active Substance: DULOXETINE HYDROCHLORIDE
  74. DEXAMETHASONE [Concomitant]
     Active Substance: DEXAMETHASONE
  75. DICLOFENAC SODIUM [Concomitant]
     Active Substance: DICLOFENAC\DICLOFENAC SODIUM
  76. DULCOLAX (BISACODYL) [Concomitant]
     Active Substance: BISACODYL
  77. FIBER LAXATIVE [Concomitant]
  78. FLOVENT [Concomitant]
     Active Substance: FLUTICASONE PROPIONATE
  79. FLUTICASONE PROPIONATE [Concomitant]
     Active Substance: FLUTICASONE PROPIONATE
  80. FORMULA EM [Concomitant]
     Active Substance: DEXTROSE\FRUCTOSE\PHOSPHORIC ACID
  81. IBUPROFEN [Concomitant]
     Active Substance: IBUPROFEN
  82. INDERAL [Concomitant]
     Active Substance: PROPRANOLOL HYDROCHLORIDE
  83. MAGNESIUM OXIDE [Concomitant]
     Active Substance: MAGNESIUM OXIDE
  84. MEDROL [Concomitant]
     Active Substance: METHYLPREDNISOLONE
  85. MIRALAX [Concomitant]
     Active Substance: POLYETHYLENE GLYCOL 3350
  86. NEXIUM [Concomitant]
     Active Substance: ESOMEPRAZOLE MAGNESIUM
  87. NYSTATIN AND TRIAMCINOLONE [Concomitant]
     Active Substance: NYSTATIN\TRIAMCINOLONE ACETONIDE
  88. POTASSIUM CHLORIDE [Concomitant]
     Active Substance: POTASSIUM CHLORIDE
  89. SALINE NASAL MIST [Concomitant]
  90. VRAYLAR [Concomitant]
     Active Substance: CARIPRAZINE
  91. ZOLPIDEM TARTRATE [Concomitant]
     Active Substance: ZOLPIDEM TARTRATE
  92. SPRAVATO [Concomitant]
     Active Substance: ESKETAMINE
     Indication: Product used for unknown indication
     Dosage: 56 MG DOSE PACK
     Dates: start: 20220103

REACTIONS (4)
  - Arrhythmia [Unknown]
  - Loss of consciousness [Unknown]
  - Head injury [Unknown]
  - Hypertension [Unknown]

NARRATIVE: CASE EVENT DATE: 20180901
